FAERS Safety Report 5775957-7 (Version None)
Quarter: 2008Q2

REPORT INFORMATION
  Report Type: 
  Country: None (occurrence: None)
  Receive Date: 20080613
  Receipt Date: 20080603
  Transmission Date: 20081010
  Serious: Yes (Hospitalization)
  Sender: FDA-Public Use
  Company Number: TRP_05751_2008

PATIENT
  Sex: Female

DRUGS (3)
  1. RIBAVIRIN [Suspect]
     Indication: HEPATITIS C VIRUS
     Dosage: 1000 MG ORAL
     Route: 048
     Dates: start: 20080328, end: 20080509
  2. PEGASYS [Suspect]
     Indication: HEPATITIS C VIRUS
     Dosage: 180 ?G  SUBCUTANEOUS
     Route: 058
     Dates: start: 20080328, end: 20080509
  3. CLOZAPINE [Concomitant]

REACTIONS (4)
  - CONDITION AGGRAVATED [None]
  - MEMORY IMPAIRMENT [None]
  - PSYCHIATRIC SYMPTOM [None]
  - WHITE BLOOD CELL COUNT DECREASED [None]
